FAERS Safety Report 4324189-8 (Version None)
Quarter: 2004Q1

REPORT INFORMATION
  Report Type: 
  Country: None (occurrence: None)
  Receive Date: 20040326
  Receipt Date: 20040106
  Transmission Date: 20041129
  Serious: No
  Sender: FDA-Public Use
  Company Number: US-GLAXOSMITHKLINE-A0491692A

PATIENT
  Age: 59 Year
  Sex: Female

DRUGS (9)
  1. ADVAIR DISKUS 100/50 [Suspect]
     Indication: ASTHMA
     Dosage: 1PUFF TWICE PER DAY
     Route: 055
  2. LIPITOR [Concomitant]
  3. EVISTA [Concomitant]
  4. NORVASC [Concomitant]
  5. FLUOXETINE [Concomitant]
  6. HYDROCHLOROTHIAZIDE [Concomitant]
  7. ASPIRIN [Concomitant]
  8. CLONAZEPAM [Concomitant]
  9. PREVACID [Concomitant]

REACTIONS (3)
  - PHARMACEUTICAL PRODUCT COMPLAINT [None]
  - RESPIRATORY TRACT CONGESTION [None]
  - UPPER RESPIRATORY TRACT CONGESTION [None]
